FAERS Safety Report 8851382 (Version 3)
Quarter: 2013Q2

REPORT INFORMATION
  Report Type: Report from Study
  Country: NO (occurrence: NO)
  Receive Date: 20121022
  Receipt Date: 20130426
  Transmission Date: 20140414
  Serious: Yes (Other)
  Sender: FDA-Public Use
  Company Number: NO-ACCORD-014966

PATIENT
  Sex: Female

DRUGS (3)
  1. LEVETIRACETAM [Suspect]
     Indication: EPILEPSY
     Dosage: DOSAGE FORM: UNSPECIFIED
     Route: 065
  2. TOPIRAMATE [Suspect]
     Indication: EPILEPSY
     Dosage: DOSAGE FORM: UNSPECIFIED
     Route: 048
  3. TEGRETOL [Suspect]
     Indication: EPILEPSY
     Dosage: 1200 MG, DAILY?DOSAGE FORM: UNSPECIFIED

REACTIONS (2)
  - Abortion spontaneous [Unknown]
  - Maternal exposure during pregnancy [Recovered/Resolved]
